FAERS Safety Report 5490254-5 (Version None)
Quarter: 2007Q4

REPORT INFORMATION
  Report Type: 
  Country: None (occurrence: None)
  Receive Date: 20071015
  Receipt Date: 20070618
  Transmission Date: 20080405
  Serious: No
  Sender: FDA-Public Use
  Company Number: 2007SP002282

PATIENT
  Age: 88 Year
  Sex: Female
  Weight: 55.3388 kg

DRUGS (10)
  1. LUNESTA [Suspect]
     Indication: INSOMNIA
     Dosage: 1 MG; 1X;ORAL   2 MG;PRN;ORAL   3 MG;PRN;ORAL
     Route: 048
     Dates: start: 20070101, end: 20070101
  2. LUNESTA [Suspect]
     Indication: INSOMNIA
     Dosage: 1 MG; 1X;ORAL   2 MG;PRN;ORAL   3 MG;PRN;ORAL
     Route: 048
     Dates: start: 20070101, end: 20070617
  3. LUNESTA [Suspect]
     Indication: INSOMNIA
     Dosage: 1 MG; 1X;ORAL   2 MG;PRN;ORAL   3 MG;PRN;ORAL
     Route: 048
     Dates: start: 20070618
  4. FUROSEMIDE [Concomitant]
  5. DILTIAZEM [Concomitant]
  6. SIMVASTATIN [Concomitant]
  7. ASCORBIC ACID [Concomitant]
  8. VITAMIN CAP [Concomitant]
  9. CALCIUM [Concomitant]
  10. MAGNESIUM SULFATE [Concomitant]

REACTIONS (2)
  - DRUG INEFFECTIVE [None]
  - INSOMNIA [None]
